FAERS Safety Report 6182099-8 (Version None)
Quarter: 2009Q2

REPORT INFORMATION
  Report Type: 
  Country: None (occurrence: None)
  Receive Date: 20090507
  Receipt Date: 20090504
  Transmission Date: 20091009
  Serious: Yes (Other)
  Sender: FDA-Public Use
  Company Number: US-JNJFOC-20090500746

PATIENT
  Age: 26 Year
  Sex: Male

DRUGS (3)
  1. HALOPERIDOL [Suspect]
     Indication: DRUG USE FOR UNKNOWN INDICATION
     Route: 065
  2. METOCLOPRAMIDE [Interacting]
     Indication: IMPAIRED GASTRIC EMPTYING
     Route: 065
  3. DIAZEPAM [Concomitant]
     Indication: SEDATION
     Route: 065

REACTIONS (3)
  - AGITATION [None]
  - DRUG INTERACTION [None]
  - NEUROLEPTIC MALIGNANT SYNDROME [None]
